FAERS Safety Report 6693513-3 (Version None)
Quarter: 2010Q2

REPORT INFORMATION
  Report Type: 
  Country: None (occurrence: None)
  Receive Date: 20100423
  Receipt Date: 20100414
  Transmission Date: 20101027
  Serious: No
  Sender: FDA-Public Use
  Company Number: US-BIOGENIDEC-2010BI013127

PATIENT
  Sex: Female

DRUGS (1)
  1. TYSABRI [Suspect]
     Indication: MULTIPLE SCLEROSIS
     Route: 042
     Dates: start: 20080730

REACTIONS (7)
  - HEADACHE [None]
  - JOINT SPRAIN [None]
  - MUSCLE SPASTICITY [None]
  - PAIN IN EXTREMITY [None]
  - PERONEAL NERVE PALSY [None]
  - SKIN LESION [None]
  - STRESS [None]
